FAERS Safety Report 4517788-1 (Version None)
Quarter: 2004Q4

REPORT INFORMATION
  Report Type: 
  Country: None (occurrence: None)
  Receive Date: 20041203
  Receipt Date: 20041020
  Transmission Date: 20050328
  Serious: Yes (Other)
  Sender: FDA-Public Use
  Company Number: JP-ROCHE-384219

PATIENT
  Age: 22 Year
  Sex: Female

DRUGS (5)
  1. ROCEPHIN [Suspect]
     Indication: TONSILLITIS
     Route: 041
     Dates: start: 20041016, end: 20041016
  2. NISORI-M [Concomitant]
     Route: 041
     Dates: start: 20041016, end: 20041016
  3. MORIAMIN [Concomitant]
     Dosage: DRUG NAME REPORTED AS MORIAMIN (MIXED AMINO ACID PREPARATIONS FOR TOTAL PARENTERAL NUTRIT)
     Route: 041
     Dates: start: 20041016, end: 20041016
  4. VITAMIN C [Concomitant]
     Dosage: FORM: INJECTION
     Route: 041
     Dates: start: 20041016, end: 20041016
  5. C-PARA [Concomitant]
     Dosage: FORM: INJECTION
     Route: 041
     Dates: start: 20041016, end: 20041016

REACTIONS (2)
  - ANAPHYLACTOID REACTION [None]
  - FALSE POSITIVE LABORATORY RESULT [None]
